FAERS Safety Report 6036502-4 (Version None)
Quarter: 2009Q1

REPORT INFORMATION
  Report Type: 
  Country: None (occurrence: None)
  Receive Date: 20090112
  Receipt Date: 20081210
  Transmission Date: 20090719
  Serious: Yes (Other)
  Sender: FDA-Public Use
  Company Number: 129932

PATIENT
  Age: 25 Year
  Sex: Male
  Weight: 70 kg

DRUGS (3)
  1. ETOPOSIDE [Suspect]
     Indication: HODGKIN'S DISEASE
     Dosage: 229 MG, INTRAVENOUS
     Route: 042
     Dates: start: 20081110, end: 20081110
  2. DOXORUBICIN HCL [Concomitant]
  3. VINCRISTINE HOSPIRA (VINCRISTINE) [Concomitant]

REACTIONS (5)
  - ABDOMINAL PAIN [None]
  - FEELING HOT [None]
  - HEADACHE [None]
  - HYPERSENSITIVITY [None]
  - RASH [None]
